FAERS Safety Report 23474048 (Version 4)
Quarter: 2024Q4

REPORT INFORMATION
  Report Type: Report from Study
  Country: CA (occurrence: CA)
  Receive Date: 20240204
  Receipt Date: 20241011
  Transmission Date: 20250115
  Serious: Yes (Hospitalization)
  Sender: CHIESI
  Company Number: CA-CHIESI-2024CHF00480

PATIENT
  Age: 60 Year
  Sex: Female

DRUGS (1)
  1. DEFERIPRONE [Suspect]
     Active Substance: DEFERIPRONE
     Indication: Sickle cell anaemia
     Dosage: 4000 MILLIGRAM
     Route: 048
     Dates: start: 20220719, end: 20231215

REACTIONS (9)
  - Heart rate decreased [Unknown]
  - Anaemia [Unknown]
  - Pain [Unknown]
  - Palpitations [Unknown]
  - Bone pain [Unknown]
  - Abdominal pain upper [Unknown]
  - Bone pain [Unknown]
  - Product dose omission issue [Unknown]
  - Product dose omission issue [Unknown]

NARRATIVE: CASE EVENT DATE: 20231215
